FAERS Safety Report 6633817-3 (Version None)
Quarter: 2010Q1

REPORT INFORMATION
  Report Type: 
  Country: None (occurrence: None)
  Receive Date: 20100315
  Receipt Date: 20100304
  Transmission Date: 20100710
  Serious: Yes (Other)
  Sender: FDA-Public Use
  Company Number: US-BRACCO-004144

PATIENT
  Age: 41 Year
  Sex: Female

DRUGS (5)
  1. MULTIHANCE [Suspect]
     Indication: NUCLEAR MAGNETIC RESONANCE IMAGING BRAIN
     Route: 042
     Dates: start: 20100302, end: 20100302
  2. MULTIHANCE [Suspect]
     Indication: HEADACHE
     Route: 042
     Dates: start: 20100302, end: 20100302
  3. MULTIHANCE [Suspect]
     Indication: DIZZINESS
     Route: 042
     Dates: start: 20100302, end: 20100302
  4. MULTIHANCE [Suspect]
     Indication: PARESIS
     Route: 042
     Dates: start: 20100302, end: 20100302
  5. THYROID TAB [Concomitant]
     Route: 048

REACTIONS (4)
  - BLINDNESS [None]
  - CHEST DISCOMFORT [None]
  - HALO VISION [None]
  - VISION BLURRED [None]
